FAERS Safety Report 4300327-8 (Version None)
Quarter: 2004Q1

REPORT INFORMATION
  Report Type: 
  Country: None (occurrence: None)
  Receive Date: 20040218
  Receipt Date: 20040203
  Transmission Date: 20041129
  Serious: Yes (Other)
  Sender: FDA-Public Use
  Company Number: B0322566A

PATIENT
  Age: 78 Year
  Sex: Male

DRUGS (1)
  1. RELAFEN [Suspect]
     Indication: ARTHRITIS

REACTIONS (2)
  - ANTIBODY TEST POSITIVE [None]
  - HAEMOLYTIC ANAEMIA [None]
